FAERS Safety Report 5807517-3 (Version None)
Quarter: 2008Q3

REPORT INFORMATION
  Report Type: 
  Country: None (occurrence: None)
  Receive Date: 20080709
  Receipt Date: 20080709
  Transmission Date: 20090109
  Serious: Yes (Hospitalization)
  Sender: FDA-Public Use
  Company Number: None

PATIENT
  Age: 67 Year
  Sex: Male

DRUGS (2)
  1. DOXYCYCLINE HCL [Suspect]
     Dosage: 100 MG BID PO
     Route: 048
     Dates: start: 20080410, end: 20080413
  2. CLINDAMYCIN [Suspect]
     Dosage: 300 MG QID PO
     Route: 048
     Dates: start: 20080410, end: 20080413

REACTIONS (1)
  - OESOPHAGITIS [None]
